FAERS Safety Report 14272066 (Version 1)
Quarter: 2017Q4

REPORT INFORMATION
  Report Type: Spontaneous
  Country: US (occurrence: US)
  Receive Date: 20171211
  Receipt Date: 20171211
  Transmission Date: 20180321
  Serious: Yes (Disabling)
  Sender: FDA-Public Use
  Company Number: US-OTSUKA-2017_008766

PATIENT
  Sex: Female

DRUGS (1)
  1. ABILIFY [Suspect]
     Active Substance: ARIPIPRAZOLE
     Indication: BIPOLAR DISORDER
     Dosage: UNK
     Route: 065

REACTIONS (8)
  - Nervousness [Unknown]
  - Memory impairment [Unknown]
  - Emotional disorder [Unknown]
  - Stress [Unknown]
  - Drug ineffective [Unknown]
  - Drug dose omission [Unknown]
  - Asthma [Not Recovered/Not Resolved]
  - Panic attack [Unknown]
